FAERS Safety Report 22365453 (Version 1)
Quarter: 2023Q2

REPORT INFORMATION
  Report Type: Spontaneous
  Country: US (occurrence: US)
  Receive Date: 20230525
  Receipt Date: 20230525
  Transmission Date: 20230722
  Serious: No
  Sender: FDA-Public Use
  Company Number: US-UCBSA-2023011182

PATIENT
  Sex: Male
  Weight: 114.29 kg

DRUGS (3)
  1. CIMZIA [Suspect]
     Active Substance: CERTOLIZUMAB PEGOL
     Indication: Ankylosing spondylitis
     Dosage: 200 MILLIGRAM, EV 2 WEEKS(QOW)
     Route: 058
     Dates: start: 2021
  2. ALEVE [Concomitant]
     Active Substance: NAPROXEN SODIUM
     Indication: Product used for unknown indication
     Dosage: 200 MILLIGRAM
  3. CLARITIN-D NOS [Concomitant]
     Active Substance: LORATADINE\PSEUDOEPHEDRINE SULFATE
     Indication: Product used for unknown indication
     Dosage: 12 HOUR

REACTIONS (6)
  - Hypersensitivity [Not Recovered/Not Resolved]
  - Product use issue [Unknown]
  - Therapy interrupted [Unknown]
  - Rash [Not Recovered/Not Resolved]
  - Inflammation [Not Recovered/Not Resolved]
  - Skin exfoliation [Not Recovered/Not Resolved]
